FAERS Safety Report 11801709 (Version 1)
Quarter: 2015Q4

REPORT INFORMATION
  Report Type: Spontaneous
  Country: US (occurrence: None)
  Receive Date: 20151203
  Receipt Date: 20151203
  Transmission Date: 20160305
  Serious: Yes (Hospitalization)
  Sender: FDA-Public Use
  Company Number: None

PATIENT
  Age: 59 Year
  Sex: Female
  Weight: 96.62 kg

DRUGS (19)
  1. MAGNESIUM OXIDE. [Concomitant]
     Active Substance: MAGNESIUM OXIDE
  2. OXY-IR [Concomitant]
     Active Substance: OXYCODONE HYDROCHLORIDE
  3. SENOKOT [Concomitant]
     Active Substance: SENNOSIDES
  4. LYRICA [Concomitant]
     Active Substance: PREGABALIN
  5. COLACE [Concomitant]
     Active Substance: DOCUSATE SODIUM
  6. AMBIEN [Concomitant]
     Active Substance: ZOLPIDEM TARTRATE
  7. TYLENOL [Concomitant]
     Active Substance: ACETAMINOPHEN
  8. SYNTHROID [Concomitant]
     Active Substance: LEVOTHYROXINE SODIUM
  9. NEXIUM [Concomitant]
     Active Substance: ESOMEPRAZOLE MAGNESIUM
  10. KEFLEX [Concomitant]
     Active Substance: CEPHALEXIN
  11. XARELTO [Concomitant]
     Active Substance: RIVAROXABAN
  12. RIVAROXABAN [Suspect]
     Active Substance: RIVAROXABAN
     Indication: ANTIPHOSPHOLIPID SYNDROME
     Route: 048
  13. ZOCOR [Concomitant]
     Active Substance: SIMVASTATIN
  14. LOVENOX [Concomitant]
     Active Substance: ENOXAPARIN SODIUM
  15. PHENERGAN [Concomitant]
     Active Substance: PROMETHAZINE HYDROCHLORIDE
  16. CLONAZEPAM. [Concomitant]
     Active Substance: CLONAZEPAM
  17. OXYCODONE [Concomitant]
     Active Substance: OXYCODONE
  18. RALOXIFENE. [Concomitant]
     Active Substance: RALOXIFENE
  19. BENADRYL [Concomitant]
     Active Substance: DIPHENHYDRAMINE HYDROCHLORIDE

REACTIONS (1)
  - Pulmonary embolism [None]

NARRATIVE: CASE EVENT DATE: 20150901
